FAERS Safety Report 19259720 (Version 1)
Quarter: 2021Q2

REPORT INFORMATION
  Report Type: Spontaneous
  Country: JP (occurrence: JP)
  Receive Date: 20210514
  Receipt Date: 20210514
  Transmission Date: 20210717
  Serious: Yes (Other)
  Sender: FDA-Public Use
  Company Number: JP-PFIZER INC-2021519248

PATIENT
  Sex: Male

DRUGS (3)
  1. SAWAI [Concomitant]
     Indication: HYPERTENSION
     Dosage: 10 MG, DAILY
  2. METHOTREXATE SODIUM. [Suspect]
     Active Substance: METHOTREXATE SODIUM
     Indication: RHEUMATOID ARTHRITIS
  3. TELMISARTAN. [Concomitant]
     Active Substance: TELMISARTAN

REACTIONS (7)
  - Myelosuppression [Unknown]
  - Dizziness [Unknown]
  - Alopecia [Unknown]
  - Arrhythmia [Unknown]
  - Contusion [Unknown]
  - Pneumocystis jirovecii pneumonia [Unknown]
  - Platelet count decreased [Unknown]
